FAERS Safety Report 12179893 (Version 1)
Quarter: 2016Q1

REPORT INFORMATION
  Report Type: Spontaneous
  Country: BR (occurrence: BR)
  Receive Date: 20160315
  Receipt Date: 20160315
  Transmission Date: 20160526
  Serious: Yes (Other)
  Sender: FDA-Public Use
  Company Number: BR-BRISTOL-MYERS SQUIBB COMPANY-BMS-2016-017724

PATIENT
  Age: 79 Year
  Sex: Female

DRUGS (1)
  1. GLIFAGE XR [Suspect]
     Active Substance: METFORMIN HYDROCHLORIDE
     Indication: MULTIPLE SCLEROSIS
     Dosage: 500 MG, QD
     Route: 065
     Dates: start: 2015

REACTIONS (3)
  - Dengue fever [Unknown]
  - Product packaging quantity issue [Unknown]
  - Cataract [Unknown]

NARRATIVE: CASE EVENT DATE: 201601
